FAERS Safety Report 20956046 (Version 2)
Quarter: 2022Q2

REPORT INFORMATION
  Report Type: Spontaneous
  Country: US (occurrence: None)
  Receive Date: 20220614
  Receipt Date: 20220615
  Transmission Date: 20220721
  Serious: Yes (Other)
  Sender: FDA-Public Use
  Company Number: US-MDD US Operations-MDD202202-000292

PATIENT
  Age: 74 Year
  Sex: Male

DRUGS (1)
  1. APOKYN [Suspect]
     Active Substance: APOMORPHINE HYDROCHLORIDE
     Indication: Product used for unknown indication
     Route: 058
     Dates: end: 20210823

REACTIONS (3)
  - Hypotension [Unknown]
  - Dizziness [Unknown]
  - Fall [Unknown]

NARRATIVE: CASE EVENT DATE: 20220219
